FAERS Safety Report 19369773 (Version 3)
Quarter: 2022Q1

REPORT INFORMATION
  Report Type: Spontaneous
  Country: IT (occurrence: IT)
  Receive Date: 20210604
  Receipt Date: 20220215
  Transmission Date: 20220423
  Serious: Yes (Hospitalization, Other)
  Sender: FDA-Public Use
  Company Number: IT-PFIZER INC-2021168018

PATIENT
  Age: 25 Year
  Sex: Male

DRUGS (21)
  1. ETORICOXIB [Suspect]
     Active Substance: ETORICOXIB
     Indication: Postoperative analgesia
     Dosage: UNK
     Route: 065
     Dates: start: 2018
  2. ETORICOXIB [Suspect]
     Active Substance: ETORICOXIB
     Indication: Pain
     Dosage: UNK
     Route: 065
     Dates: start: 201810
  3. ACETAMINOPHEN [Suspect]
     Active Substance: ACETAMINOPHEN
     Indication: Pain
     Dosage: UNK
     Route: 065
     Dates: start: 2018
  4. PREGABALIN [Suspect]
     Active Substance: PREGABALIN
     Indication: Analgesic therapy
     Dosage: 3000 MILLIGRAM, ONCE A DAY
     Route: 065
  5. PREGABALIN [Suspect]
     Active Substance: PREGABALIN
     Indication: Pain
     Dosage: DAILY DOSE 900/1500MG
     Route: 048
     Dates: start: 2018
  6. PREGABALIN [Suspect]
     Active Substance: PREGABALIN
     Indication: Postoperative analgesia
     Dosage: 300 MILLIGRAM, ONCE A DAY
     Route: 065
  7. PREGABALIN [Suspect]
     Active Substance: PREGABALIN
     Dosage: 25 MILLIGRAM, ONCE A DAY
     Route: 065
  8. PREGABALIN [Suspect]
     Active Substance: PREGABALIN
     Dosage: 75 MILLIGRAM, ONCE A DAY
     Route: 065
  9. PREGABALIN [Suspect]
     Active Substance: PREGABALIN
     Dosage: 50 MILLIGRAM, ONCE A DAY (ADDITIONAL LOW DOSAGES OF PREGABALIN (25-50 MG/DAY)
     Route: 048
  10. ADEMETIONINE [Suspect]
     Active Substance: ADEMETIONINE
     Indication: Pain
     Dosage: UNK
     Route: 065
     Dates: start: 2018
  11. ADEMETIONINE [Suspect]
     Active Substance: ADEMETIONINE
     Indication: Postoperative analgesia
     Dosage: UNK
     Route: 065
     Dates: start: 201810
  12. ACETAMINOPHEN [Suspect]
     Active Substance: ACETAMINOPHEN
     Indication: Pain
     Dosage: UNK
     Route: 065
     Dates: start: 2018
  13. ACETAMINOPHEN [Suspect]
     Active Substance: ACETAMINOPHEN
     Indication: Postoperative analgesia
  14. CANNABIS SATIVA SUBSP. INDICA TOP [Suspect]
     Active Substance: CANNABIS SATIVA SUBSP. INDICA TOP
     Indication: Product used for unknown indication
     Dosage: 12 GRAM, ONCE A DAY
     Route: 065
  15. METHADONE [Suspect]
     Active Substance: METHADONE HYDROCHLORIDE
     Indication: Postoperative analgesia
     Dosage: 30 MILLIGRAM, ONCE A DAY
     Route: 065
     Dates: start: 2019
  16. METHADONE [Suspect]
     Active Substance: METHADONE HYDROCHLORIDE
     Dosage: 5 MILLIGRAM, ONCE A DAY , IN THE MORNING
     Route: 048
     Dates: start: 2019
  17. ADEMETIONINE [Concomitant]
     Active Substance: ADEMETIONINE
     Indication: Pain
     Dosage: UNK
     Route: 065
     Dates: start: 201811
  18. ADEMETIONINE [Concomitant]
     Active Substance: ADEMETIONINE
     Indication: Postoperative analgesia
  19. ETORICOXIB [Concomitant]
     Active Substance: ETORICOXIB
     Indication: Pain
     Dosage: UNK
     Route: 065
     Dates: start: 2018
  20. ETORICOXIB [Concomitant]
     Active Substance: ETORICOXIB
     Indication: Postoperative analgesia
  21. METHIONINE [Concomitant]
     Active Substance: METHIONINE
     Indication: Postoperative analgesia
     Dosage: UNK
     Route: 065
     Dates: start: 2018

REACTIONS (43)
  - Substance use disorder [Recovered/Resolved]
  - Drug use disorder [Recovered/Resolved]
  - Derealisation [Recovered/Resolved]
  - Depersonalisation/derealisation disorder [Recovered/Resolved]
  - Confusional state [Recovered/Resolved]
  - Dyspnoea [Recovered/Resolved]
  - Influenza like illness [Recovered/Resolved]
  - Eye pain [Recovered/Resolved]
  - Fatigue [Recovered/Resolved]
  - Agitation [Recovered/Resolved]
  - Headache [Recovered/Resolved]
  - Dysphoria [Recovered/Resolved]
  - Back pain [Recovered/Resolved]
  - Insomnia [Recovered/Resolved]
  - Dizziness [Recovered/Resolved]
  - Tachycardia [Recovered/Resolved]
  - Irritability [Recovered/Resolved]
  - Palpitations [Recovered/Resolved]
  - Visual impairment [Recovered/Resolved]
  - Myalgia [Recovered/Resolved]
  - Dissociative disorder [Recovered/Resolved]
  - Nervousness [Recovered/Resolved]
  - Disturbance in attention [Recovered/Resolved]
  - Mood swings [Recovered/Resolved]
  - Photophobia [Recovered/Resolved]
  - Euphoric mood [Recovered/Resolved]
  - Nausea [Recovered/Resolved]
  - Withdrawal syndrome [Recovered/Resolved]
  - Phonophobia [Recovered/Resolved]
  - Influenza like illness [Recovered/Resolved]
  - Drug abuse [Recovered/Resolved]
  - Intentional overdose [Recovered/Resolved]
  - Drug ineffective [Unknown]
  - Intentional product use issue [Recovered/Resolved]
  - Decreased appetite [Recovered/Resolved]
  - Tension [Recovered/Resolved]
  - Delayed sleep phase [Recovered/Resolved]
  - Hyperphagia [Recovered/Resolved]
  - Constipation [Recovering/Resolving]
  - Panic attack [Unknown]
  - Anxiety [Unknown]
  - Overdose [Unknown]
  - Off label use [Unknown]

NARRATIVE: CASE EVENT DATE: 20180101
